FAERS Safety Report 9204307 (Version 2)
Quarter: 2013Q2

REPORT INFORMATION
  Report Type: Spontaneous
  Country: US (occurrence: US)
  Receive Date: 20130402
  Receipt Date: 20130422
  Transmission Date: 20140414
  Serious: Yes (Hospitalization, Other)
  Sender: FDA-Public Use
  Company Number: US-ROCHE-1206629

PATIENT
  Sex: Male

DRUGS (2)
  1. XOLAIR [Suspect]
     Indication: ASTHMA
     Route: 058
     Dates: start: 20101221, end: 20121204
  2. SYMBICORT [Concomitant]
     Indication: ASTHMA
     Route: 065
     Dates: start: 20080121

REACTIONS (2)
  - Tendon rupture [Recovering/Resolving]
  - Contusion [Unknown]
